FAERS Safety Report 10675743 (Version 1)
Quarter: 2014Q4

REPORT INFORMATION
  Report Type: Spontaneous
  Country: US (occurrence: US)
  Receive Date: 20141224
  Receipt Date: 20141224
  Transmission Date: 20150529
  Serious: No
  Sender: FDA-Public Use
  Company Number: US-ACORDA-ACO_106641_2014

PATIENT
  Sex: Male
  Weight: 92.97 kg

DRUGS (13)
  1. ZANAFLEX [Suspect]
     Active Substance: TIZANIDINE HYDROCHLORIDE
     Dosage: 4 MG, 1-2 PILLS AS REQUIRED
     Route: 065
     Dates: start: 20140721
  2. HUMIRA [Suspect]
     Active Substance: ADALIMUMAB
     Indication: ANKYLOSING SPONDYLITIS
     Dosage: 40 MG, UNK
     Route: 058
     Dates: start: 201403
  3. MEN^S MULTIVITAMIN [Concomitant]
     Indication: VITAMIN SUPPLEMENTATION
     Dosage: UNK
  4. TRAMADOL [Concomitant]
     Active Substance: TRAMADOL
     Indication: RHEUMATOID ARTHRITIS
  5. ZANAFLEX [Suspect]
     Active Substance: TIZANIDINE HYDROCHLORIDE
     Indication: MUSCLE SPASMS
     Dosage: 2 MG, 1-2 PILLS AS REQUIRED
     Route: 065
     Dates: start: 20140417, end: 2014
  6. TRAMADOL [Concomitant]
     Active Substance: TRAMADOL
     Indication: ANKYLOSING SPONDYLITIS
     Dosage: 100 MG, 2 IN 1 DAY
  7. TRAMADOL [Concomitant]
     Active Substance: TRAMADOL
     Indication: PAIN
  8. SULFASALAZINE. [Concomitant]
     Active Substance: SULFASALAZINE
     Indication: RHEUMATOID ARTHRITIS
  9. IBUPROFEN. [Concomitant]
     Active Substance: IBUPROFEN
     Indication: HEADACHE
     Dosage: 200 MG, PRN
  10. HUMIRA [Suspect]
     Active Substance: ADALIMUMAB
     Indication: RHEUMATOID ARTHRITIS
  11. OXAPROZIN. [Concomitant]
     Active Substance: OXAPROZIN
     Indication: ANKYLOSING SPONDYLITIS
     Dosage: 1200 MG, UNK
  12. PROTONIX [Concomitant]
     Active Substance: PANTOPRAZOLE SODIUM
     Indication: GASTRIC ULCER
     Dosage: 20 MG, QD
  13. SULFASALAZINE. [Concomitant]
     Active Substance: SULFASALAZINE
     Indication: ANKYLOSING SPONDYLITIS
     Dosage: 2 IN 1 DAY

REACTIONS (4)
  - Injection site haemorrhage [Unknown]
  - Drug ineffective for unapproved indication [Unknown]
  - Injection site pain [Unknown]
  - Muscle spasms [Unknown]

NARRATIVE: CASE EVENT DATE: 2014
